FAERS Safety Report 4692551-X (Version None)
Quarter: 2005Q2

REPORT INFORMATION
  Report Type: 
  Country: None (occurrence: None)
  Receive Date: 20050617
  Receipt Date: 20050608
  Transmission Date: 20051028
  Serious: Yes (Hospitalization)
  Sender: FDA-Public Use
  Company Number: PHRM2005FR01775

PATIENT
  Age: 27 Year
  Sex: Male
  Weight: 104 kg

DRUGS (4)
  1. TERCIAN [Concomitant]
     Dosage: UNK, UNK
     Route: 048
     Dates: start: 19990101
  2. HALDOL [Concomitant]
     Dosage: UNK, UNK
     Route: 048
     Dates: start: 19990101
  3. DEROXAT [Concomitant]
     Dosage: UNK, UNK
     Route: 048
     Dates: start: 20020101
  4. TEGRETOL [Suspect]
     Dosage: 600 MG/DAY
     Route: 048
     Dates: start: 19950101

REACTIONS (3)
  - ANAEMIA MACROCYTIC [None]
  - FOLATE DEFICIENCY [None]
  - HAEMOLYTIC ANAEMIA [None]
